FAERS Safety Report 17968222 (Version 6)
Quarter: 2021Q1

REPORT INFORMATION
  Report Type: Report from Study
  Country: DE (occurrence: DE)
  Receive Date: 20200701
  Receipt Date: 20210218
  Transmission Date: 20210419
  Serious: Yes (Hospitalization)
  Sender: FDA-Public Use
  Company Number: DE-TEVA-2020-DE-1792856

PATIENT
  Age: 65 Year
  Sex: Male
  Weight: 97 kg

DRUGS (17)
  1. CISPLATIN. [Suspect]
     Active Substance: CISPLATIN
     Indication: NON-SMALL CELL LUNG CANCER
     Dosage: 150 MILLIGRAM
     Route: 042
     Dates: start: 20191015, end: 2019
  2. DOXAZOSIN [Concomitant]
     Active Substance: DOXAZOSIN MESYLATE
     Dosage: 4 MILLIGRAM DAILY;
     Route: 048
  3. METOPROLOL. [Concomitant]
     Active Substance: METOPROLOL
     Dosage: 50 MG, BID, UNIT DOSE: 100 MG
     Route: 048
  4. ALLOPURINOL. [Concomitant]
     Active Substance: ALLOPURINOL
     Dosage: 100 MILLIGRAM DAILY;
     Route: 048
  5. CISPLATIN. [Suspect]
     Active Substance: CISPLATIN
     Indication: NON-SMALL CELL LUNG CANCER
     Dosage: 75 MILLIGRAM
     Route: 042
     Dates: start: 20191217, end: 20191217
  6. AMLODIPIN [AMLODIPINE BESILATE] [Concomitant]
     Active Substance: AMLODIPINE BESYLATE
     Dosage: 10 MILLIGRAM DAILY;
     Route: 048
  7. FOLIC ACID. [Concomitant]
     Active Substance: FOLIC ACID
     Dosage: 1 MILLIGRAM DAILY;
     Route: 048
     Dates: start: 20191015
  8. LACOSAMIDE. [Concomitant]
     Active Substance: LACOSAMIDE
     Dosage: 100 MILLIGRAM, QD (ALSO REPORTED AS 200 MG, QD), UNIT DOSE: 200 MG
     Route: 048
  9. PEMETREXED DISODIUM [Suspect]
     Active Substance: PEMETREXED DISODIUM
     Indication: NON-SMALL CELL LUNG CANCER
     Dosage: 1000 MILLIGRAM
     Route: 042
     Dates: start: 20191015, end: 2019
  10. PEMETREXED DISODIUM [Suspect]
     Active Substance: PEMETREXED DISODIUM
     Indication: NON-SMALL CELL LUNG CANCER
     Dosage: 500 MILLIGRAM
     Route: 042
     Dates: start: 20191217, end: 20191217
  11. PEMBROLIZUMAB. [Suspect]
     Active Substance: PEMBROLIZUMAB
     Indication: NON-SMALL CELL LUNG CANCER
     Dosage: 200 MILLIGRAM
     Route: 042
     Dates: start: 20191015, end: 20200107
  12. ASPIRIN. [Concomitant]
     Active Substance: ASPIRIN
     Dosage: 50 MILLIGRAM DAILY;
     Route: 048
  13. LACOSAMIDE. [Concomitant]
     Active Substance: LACOSAMIDE
     Dosage: 100 MILLIGRAM DAILY; (ALSO REPORTED AS 200 MG, QD)
     Route: 048
  14. MCP (METOCLOPRAMIDE HYDROCHLORIDE) [Concomitant]
     Dosage: 10 MILLIGRAM DAILY; PRN
     Route: 048
     Dates: start: 20191015
  15. OLMESARTAN MEDOXOMIL. [Concomitant]
     Active Substance: OLMESARTAN MEDOXOMIL
     Dosage: 40 MILLIGRAM DAILY;
     Route: 048
  16. FINASTERID [Concomitant]
     Active Substance: FINASTERIDE
     Dosage: 5 MILLIGRAM DAILY;
     Route: 048
  17. LEVETIRACETAM ALTER [Concomitant]
     Dosage: 1000 MG, BID, UNIT DOSE : 2000 MG
     Route: 048

REACTIONS (2)
  - Immune-mediated adverse reaction [Recovered/Resolved]
  - General physical health deterioration [Recovered/Resolved]

NARRATIVE: CASE EVENT DATE: 20200130
